FAERS Safety Report 17204753 (Version 6)
Quarter: 2020Q3

REPORT INFORMATION
  Report Type: Report from Study
  Country: None (occurrence: CO)
  Receive Date: 20191226
  Receipt Date: 20200708
  Transmission Date: 20201102
  Serious: Yes (Hospitalization, Other)
  Sender: FDA-Public Use
  Company Number: CO-ABBVIE-19K-036-3210018-00

PATIENT
  Age: 73 Year
  Sex: Female
  Weight: 66 kg

DRUGS (3)
  1. CARBAMAZEPINE. [Suspect]
     Active Substance: CARBAMAZEPINE
     Indication: PRODUCT USED FOR UNKNOWN INDICATION
     Route: 065
  2. HUMIRA [Suspect]
     Active Substance: ADALIMUMAB
     Indication: RHEUMATOID ARTHRITIS
     Route: 058
  3. HUMIRA [Suspect]
     Active Substance: ADALIMUMAB
     Indication: RHEUMATOID ARTHRITIS
     Route: 058
     Dates: start: 20080711

REACTIONS (17)
  - Flank pain [Not Recovered/Not Resolved]
  - Infection [Recovering/Resolving]
  - Decreased appetite [Recovered/Resolved]
  - Intervertebral disc disorder [Recovering/Resolving]
  - Dementia [Recovering/Resolving]
  - Sciatica [Recovering/Resolving]
  - Anxiety [Recovering/Resolving]
  - Loss of consciousness [Recovering/Resolving]
  - Skin disorder [Recovering/Resolving]
  - Speech disorder [Unknown]
  - Behaviour disorder [Recovering/Resolving]
  - Spinal pain [Not Recovered/Not Resolved]
  - Coordination abnormal [Unknown]
  - Weight decreased [Unknown]
  - Blood albumin decreased [Recovered/Resolved]
  - Blood potassium decreased [Recovered/Resolved]
  - Purulence [Recovering/Resolving]

NARRATIVE: CASE EVENT DATE: 201912
